FAERS Safety Report 5851108-5 (Version None)
Quarter: 2008Q3

REPORT INFORMATION
  Report Type: 
  Country: None (occurrence: None)
  Receive Date: 20080820
  Receipt Date: 20080815
  Transmission Date: 20090109
  Serious: Yes (Death)
  Sender: FDA-Public Use
  Company Number: A0742925A

PATIENT
  Age: 50 Year
  Sex: Male
  Weight: 64 kg

DRUGS (4)
  1. SERETIDE DISKUS [Suspect]
     Indication: ASTHMA
     Route: 055
     Dates: start: 20070301, end: 20080808
  2. METICORTEN [Concomitant]
     Dates: start: 20080701, end: 20080706
  3. OMEPRAZOLE [Concomitant]
     Dosage: 40MG PER DAY
     Dates: start: 20080701, end: 20080808
  4. CIPROFLOXACIN [Concomitant]
     Dates: start: 20080701, end: 20080715

REACTIONS (2)
  - PNEUMONIA [None]
  - RESPIRATORY FAILURE [None]
